FAERS Safety Report 7013049 (Version 3)
Quarter: 2014Q2

REPORT INFORMATION
  Report Type: Spontaneous
  Country: AT (occurrence: AT)
  Receive Date: 20090608
  Receipt Date: 20140513
  Transmission Date: 20141212
  Serious: Yes (Life-Threatening, Hospitalization)
  Sender: FDA-Public Use
  Company Number: AT-PFIZER INC-2009220848

PATIENT
  Age: 45 Year
  Sex: Male

DRUGS (12)
  1. DEPAKINE CHRONO [Suspect]
     Dosage: 500 MG, 2X/DAY
     Route: 048
     Dates: end: 20090418
  2. DEPAKINE CHRONO [Suspect]
     Dosage: 1000 MG, 1X/DAY
     Dates: start: 20090421
  3. PANTOLOC [Suspect]
     Dosage: 20 MG, 1X/DAY
     Route: 048
     Dates: end: 20090418
  4. PANTOLOC [Suspect]
     Dosage: 40 MG, 1X/DAY
  5. ZYPREXA [Suspect]
     Dosage: 30 MG, 1X/DAY
     Route: 048
     Dates: end: 20090418
  6. ZYPREXA [Suspect]
     Dosage: 30 MG, 1X/DAY
     Dates: start: 20090421
  7. DOMINAL FORTE [Suspect]
     Dosage: 80 MG, 1X/DAY
     Route: 048
     Dates: end: 20090418
  8. DOMINAL FORTE [Suspect]
     Dosage: 80 MG, 1X/DAY
     Dates: start: 20090420
  9. XANOR [Concomitant]
     Indication: SCHIZOPHRENIA, PARANOID TYPE
     Dosage: 1 MG, 1X/DAY
     Route: 048
     Dates: end: 20090418
  10. AKINETON [Concomitant]
     Dosage: 2 MG, 2X/DAY
     Route: 048
     Dates: end: 20090418
  11. NORVASC [Concomitant]
     Dosage: 5 MG, 1X/DAY
  12. TEMESTA [Concomitant]
     Dosage: 5 MG, 1X/DAY

REACTIONS (3)
  - Status epilepticus [Recovered/Resolved]
  - Blood creatine phosphokinase increased [Recovered/Resolved]
  - Hyponatraemia [Recovered/Resolved]
